FAERS Safety Report 11441462 (Version 2)
Quarter: 2015Q3

REPORT INFORMATION
  Report Type: Spontaneous
  Country: US (occurrence: US)
  Receive Date: 20150821
  Receipt Date: 20150831
  Transmission Date: 20151125
  Serious: No
  Sender: FDA-Public Use
  Company Number: US-ELI_LILLY_AND_COMPANY-US200807004958

PATIENT
  Age: 35 Year
  Sex: Female

DRUGS (6)
  1. TEMAZEPAM. [Concomitant]
     Active Substance: TEMAZEPAM
     Indication: INSOMNIA
     Dosage: 30 MG, EACH EVENING
  2. ACYCLOVIR. [Concomitant]
     Active Substance: ACYCLOVIR
     Indication: HERPES VIRUS INFECTION
     Dosage: 400 MG, 2/D
     Route: 048
  3. SINGULAIR [Concomitant]
     Active Substance: MONTELUKAST SODIUM
     Indication: HYPERSENSITIVITY
     Dosage: 10 MG, DAILY (1/D)
  4. LEXAPRO [Concomitant]
     Active Substance: ESCITALOPRAM OXALATE
     Indication: ANXIETY
     Dates: start: 20080729
  5. CYMBALTA [Suspect]
     Active Substance: DULOXETINE HYDROCHLORIDE
     Indication: ANXIETY
     Dosage: 30 MG, UNK
     Dates: start: 20080723, end: 20080726
  6. FLONASE [Concomitant]
     Active Substance: FLUTICASONE PROPIONATE
     Indication: HYPERSENSITIVITY
     Dosage: UNK, AS NEEDED

REACTIONS (6)
  - Fatigue [Unknown]
  - Influenza like illness [Unknown]
  - Nausea [Recovered/Resolved]
  - Feeling abnormal [Unknown]
  - Dizziness [Unknown]
  - Head discomfort [Unknown]

NARRATIVE: CASE EVENT DATE: 20080723
